FAERS Safety Report 10481945 (Version 3)
Quarter: 2015Q1

REPORT INFORMATION
  Report Type: Report from Study
  Country: US (occurrence: US)
  Receive Date: 20140929
  Receipt Date: 20150226
  Transmission Date: 20150720
  Serious: Yes (Death, Hospitalization, Other)
  Sender: FDA-Public Use
  Company Number: US-BAYER-2014-118674

PATIENT
  Age: 53 Year
  Sex: Male

DRUGS (2)
  1. NEXAVAR [Suspect]
     Active Substance: SORAFENIB
     Indication: BRAIN NEOPLASM
  2. NEXAVAR [Suspect]
     Active Substance: SORAFENIB
     Indication: METASTASIS
     Dosage: 400 MG, BID
     Route: 048
     Dates: start: 20140710, end: 20140908

REACTIONS (8)
  - Brain neoplasm [None]
  - Fatigue [Recovered/Resolved]
  - Pulmonary embolism [Fatal]
  - Product use issue [None]
  - Internal haemorrhage [None]
  - Vomiting [Recovered/Resolved]
  - Diarrhoea [Recovered/Resolved]
  - Nausea [Recovered/Resolved]

NARRATIVE: CASE EVENT DATE: 201407
